FAERS Safety Report 7256388-X (Version None)
Quarter: 2011Q1

REPORT INFORMATION
  Report Type: 
  Country: None (occurrence: None)
  Receive Date: 20110129
  Receipt Date: 20100707
  Transmission Date: 20110831
  Serious: No
  Sender: FDA-Public Use
  Company Number: US-ABBOTT-10P-163-0656520-00

PATIENT
  Sex: Male
  Weight: 136.2 kg

DRUGS (4)
  1. CELEXA [Concomitant]
     Indication: PRODUCT USED FOR UNKNOWN INDICATION
     Dosage: 10 MG/DAY
  2. HUMIRA [Suspect]
     Indication: PSORIASIS
     Dates: start: 20100302, end: 20100527
  3. HUMIRA [Suspect]
     Dates: start: 20100527, end: 20100701
  4. CLOBEX SPRAY [Concomitant]
     Indication: PSORIASIS

REACTIONS (3)
  - INJECTION SITE ERYTHEMA [None]
  - GUTTATE PSORIASIS [None]
  - PSORIASIS [None]
